FAERS Safety Report 13837134 (Version 1)
Quarter: 2017Q3

REPORT INFORMATION
  Report Type: Spontaneous
  Country: US (occurrence: US)
  Receive Date: 20170804
  Receipt Date: 20170804
  Transmission Date: 20171127
  Serious: No
  Sender: FDA-Public Use
  Company Number: US-ROCHE-528085

PATIENT
  Sex: Female

DRUGS (2)
  1. ATENOLOL. [Concomitant]
     Active Substance: ATENOLOL
  2. BONIVA [Suspect]
     Active Substance: IBANDRONATE SODIUM
     Indication: PRODUCT USED FOR UNKNOWN INDICATION
     Dosage: PATIENT ON BONIVA FOR ABOUT 9-10 MONTHS.
     Route: 048

REACTIONS (5)
  - Pain in jaw [Unknown]
  - Joint swelling [Unknown]
  - Neck pain [Unknown]
  - Dysphagia [Unknown]
  - Arthralgia [Unknown]
